FAERS Safety Report 5146087-2 (Version None)
Quarter: 2006Q4

REPORT INFORMATION
  Report Type: 
  Country: None (occurrence: None)
  Receive Date: 20061108
  Receipt Date: 20061101
  Transmission Date: 20070319
  Serious: Yes (Other)
  Sender: FDA-Public Use
  Company Number: 2006UW21389

PATIENT
  Age: 64 Year
  Sex: Female

DRUGS (6)
  1. MERREM [Suspect]
     Dosage: THREE DAILY
     Route: 042
  2. CEFTAZIDIME [Suspect]
     Dosage: THREE DAILY
     Route: 042
  3. LEVOTHYROXINE SODIUM [Concomitant]
  4. PANCREASE MT 16 [Concomitant]
  5. RABEPRAZOLE SODIUM [Concomitant]
  6. BECLOMETHASONE DIPROPIONATE [Concomitant]

REACTIONS (5)
  - HYPERSENSITIVITY [None]
  - HYPOAESTHESIA [None]
  - PARAESTHESIA [None]
  - PRURITUS [None]
  - THROAT IRRITATION [None]
